FAERS Safety Report 14889887 (Version 1)
Quarter: 2018Q2

REPORT INFORMATION
  Report Type: Spontaneous
  Country: AU (occurrence: AU)
  Receive Date: 20180514
  Receipt Date: 20180514
  Transmission Date: 20180711
  Serious: Yes (Other)
  Sender: FDA-Public Use
  Company Number: AU-TEVA-2018-AU-889225

PATIENT
  Age: 67 Year
  Sex: Male

DRUGS (1)
  1. IMATINIB [Suspect]
     Active Substance: IMATINIB
     Indication: CHRONIC MYELOID LEUKAEMIA
     Dosage: IMATINIB 600MG
     Route: 048
     Dates: end: 20180226

REACTIONS (1)
  - Ascites [Recovered/Resolved]

NARRATIVE: CASE EVENT DATE: 201801
